FAERS Safety Report 11497847 (Version 2)
Quarter: 2015Q4

REPORT INFORMATION
  Report Type: Spontaneous
  Country: US (occurrence: US)
  Receive Date: 20150911
  Receipt Date: 20151105
  Transmission Date: 20160304
  Serious: Yes (Hospitalization)
  Sender: FDA-Public Use
  Company Number: US-INCYTE CORPORATION-2015IN004415

PATIENT
  Age: 79 Year
  Sex: Male
  Weight: 67.12 kg

DRUGS (22)
  1. POTASSIUM CHLORIDE. [Concomitant]
     Active Substance: POTASSIUM CHLORIDE
     Dosage: UNK
  2. VITAMIN B [Concomitant]
     Active Substance: VITAMIN B
     Dosage: UNK
  3. FERROUS SULFATE [Concomitant]
     Active Substance: FERROUS SULFATE\FERROUS SULFATE, DRIED
     Dosage: UNK
  4. MESALAMINE. [Concomitant]
     Active Substance: MESALAMINE
     Dosage: UNK
  5. JAKAFI [Suspect]
     Active Substance: RUXOLITINIB
     Dosage: 20 MG, QD
     Route: 048
     Dates: start: 201507, end: 20150824
  6. VITAMIN C [Concomitant]
     Active Substance: ASCORBIC ACID
  7. HAIR NUTRITION [Concomitant]
  8. FUROSEMIDE. [Concomitant]
     Active Substance: FUROSEMIDE
     Dosage: UNK
  9. PANTOPRAZOLE [Concomitant]
     Active Substance: PANTOPRAZOLE SODIUM
     Dosage: UNK
  10. FERROUS SULFATE [Concomitant]
     Active Substance: FERROUS SULFATE\FERROUS SULFATE, DRIED
  11. VITAMIN B12 [Concomitant]
     Active Substance: CYANOCOBALAMIN
  12. VANCOMYCIN [Concomitant]
     Active Substance: VANCOMYCIN
     Dosage: UNK
  13. MULTIVITAMIN                       /00097801/ [Concomitant]
     Active Substance: VITAMINS
  14. NEOMYCIN AND POLYMYXIN B SULFATES AND DEXAMET [Concomitant]
     Dosage: UNK
  15. DOXAZOSIN [Concomitant]
     Active Substance: DOXAZOSIN\DOXAZOSIN MESYLATE
     Dosage: UNK
  16. CALCIUM [Concomitant]
     Active Substance: CALCIUM
  17. TAMSULOSIN [Concomitant]
     Active Substance: TAMSULOSIN
     Dosage: UNK
  18. JAKAFI [Suspect]
     Active Substance: RUXOLITINIB
     Indication: MYELOFIBROSIS
     Dosage: 20 MG, QD
     Route: 048
     Dates: start: 20150606, end: 20150701
  19. ASACOL HD [Concomitant]
     Active Substance: MESALAMINE
  20. FOLIC ACID. [Concomitant]
     Active Substance: FOLIC ACID
  21. MUPIROCIN. [Concomitant]
     Active Substance: MUPIROCIN
     Dosage: UNK
  22. CHOLECALCIFEROL [Concomitant]
     Active Substance: CHOLECALCIFEROL
     Dosage: UNK

REACTIONS (12)
  - Gastrointestinal angiodysplasia haemorrhagic [Unknown]
  - Skin injury [Recovering/Resolving]
  - Weight decreased [Unknown]
  - Dizziness [Unknown]
  - Fatigue [Unknown]
  - Anaemia [Unknown]
  - Peripheral swelling [Unknown]
  - Fall [Recovered/Resolved]
  - Duodenal ulcer haemorrhage [Recovered/Resolved]
  - Oedema peripheral [Recovering/Resolving]
  - Epistaxis [Unknown]
  - Clostridium difficile colitis [Recovering/Resolving]

NARRATIVE: CASE EVENT DATE: 201507
